FAERS Safety Report 17664045 (Version 2)
Quarter: 2020Q2

REPORT INFORMATION
  Report Type: Spontaneous
  Country: MX (occurrence: MX)
  Receive Date: 20200414
  Receipt Date: 20200420
  Transmission Date: 20200713
  Serious: Yes (Other)
  Sender: FDA-Public Use
  Company Number: MX-ALVOGEN-2020-ALVOGEN-108092

PATIENT
  Age: 63 Year
  Sex: Female
  Weight: 82 kg

DRUGS (13)
  1. PROPRANOLOL HYDROCHLORIDE. [Suspect]
     Active Substance: PROPRANOLOL HYDROCHLORIDE
     Indication: PRODUCT USED FOR UNKNOWN INDICATION
     Route: 048
     Dates: start: 1983, end: 1993
  2. AMIODARONE [Concomitant]
     Active Substance: AMIODARONE
     Indication: ILL-DEFINED DISORDER
     Route: 048
     Dates: start: 1983
  3. ALLOPURINOL. [Concomitant]
     Active Substance: ALLOPURINOL
     Indication: RENAL FAILURE
     Dosage: 0.5 TAB A DAY
     Route: 048
  4. AMLODIPINE BESILATE/HYDROCHLOROTHIAZIDE/VALSARTAN [Concomitant]
     Active Substance: AMLODIPINE BESYLATE\HYDROCHLOROTHIAZIDE\VALSARTAN
     Indication: HYPERTENSION
     Route: 048
     Dates: start: 20200310
  5. HYDROCHLOROTHIAZIDE/AMLODIPINE/VALSARTAN [Concomitant]
     Indication: HYPERTENSION
     Dosage: ONE TABLET IN THE MORNING AND ANOTHER TABLET AT NIGHT, ONLY WHEN SHE MEASURES THE PRESSURE AT NIG...
     Route: 048
     Dates: start: 20200313
  6. CRESTOR [Suspect]
     Active Substance: ROSUVASTATIN CALCIUM
     Indication: PRODUCT USED FOR UNKNOWN INDICATION
     Route: 048
  7. BIOFILIN [Concomitant]
     Indication: ANGIOPLASTY
     Route: 048
  8. HYDROCHLOROTHIAZIDE/AMLODIPINE/VALSARTAN [Concomitant]
     Indication: HYPERTENSION
     Dosage: ONE TABLET IN THE MORNING AND ANOTHER TABLET AT NIGHT, ONLY WHEN SHE MEASURES THE PRESSURE AT NIG...
     Route: 048
     Dates: start: 20200313
  9. ALPRAZOLAM. [Concomitant]
     Active Substance: ALPRAZOLAM
     Indication: ANGIOPLASTY
     Route: 048
  10. HYDROCHLOROTHIAZIDE/AMLODIPINE/VALSARTAN [Concomitant]
     Indication: HYPERTENSION
     Route: 048
     Dates: start: 20200310
  11. TENORETIC [Suspect]
     Active Substance: ATENOLOL\CHLORTHALIDONE
     Indication: BLOOD PRESSURE MANAGEMENT
     Route: 048
     Dates: start: 1993, end: 2014
  12. SIMVASTATIN. [Concomitant]
     Active Substance: SIMVASTATIN
     Indication: ANGIOPLASTY
     Route: 048
  13. TENORETIC [Suspect]
     Active Substance: ATENOLOL\CHLORTHALIDONE
     Indication: BLOOD PRESSURE MANAGEMENT
     Route: 048

REACTIONS (6)
  - Blood pressure increased [Recovered/Resolved]
  - Extrasystoles [Unknown]
  - Renal failure [Unknown]
  - Hypoaesthesia oral [Unknown]
  - Pre-eclampsia [Recovered/Resolved]
  - Feeling hot [Unknown]

NARRATIVE: CASE EVENT DATE: 1983
